FAERS Safety Report 9607583 (Version 1)
Quarter: 2013Q4

REPORT INFORMATION
  Report Type: Spontaneous
  Country: US (occurrence: None)
  Receive Date: 20131007
  Receipt Date: 20131007
  Transmission Date: 20140711
  Serious: Yes (Life-Threatening, Hospitalization, Disabling)
  Sender: FDA-Public Use
  Company Number: None

PATIENT
  Age: 66 Year
  Sex: Female
  Weight: 76.66 kg

DRUGS (2)
  1. ACTHAR [Suspect]
     Indication: RENAL DISORDER
     Dosage: 1 ML TWO TIMES A WEEK INJECT, --, INTO THE MUSCLE
     Route: 030
     Dates: start: 20120703, end: 20121206
  2. ACTHAR [Suspect]
     Indication: GLOMERULONEPHRITIS MEMBRANOUS
     Dosage: 1 ML TWO TIMES A WEEK INJECT, --, INTO THE MUSCLE
     Route: 030
     Dates: start: 20120703, end: 20121206

REACTIONS (15)
  - Dyspnoea [None]
  - Muscular weakness [None]
  - Cataract [None]
  - Deafness [None]
  - Immune system disorder [None]
  - Alopecia [None]
  - Nail disorder [None]
  - Blood cholesterol increased [None]
  - Diabetes mellitus [None]
  - Skin wrinkling [None]
  - Rotator cuff syndrome [None]
  - Blood pressure abnormal [None]
  - Blood potassium abnormal [None]
  - Blood magnesium abnormal [None]
  - Blood calcium abnormal [None]
